FAERS Safety Report 13047411 (Version 1)
Quarter: 2016Q4

REPORT INFORMATION
  Report Type: Spontaneous
  Country: LB (occurrence: LB)
  Receive Date: 20161220
  Receipt Date: 20161220
  Transmission Date: 20170207
  Serious: Yes (Hospitalization, Other)
  Sender: FDA-Public Use
  Company Number: LB-ASTRAZENECA-2016SF32019

PATIENT
  Sex: Male

DRUGS (5)
  1. PROSTATIN [Concomitant]
     Active Substance: ARCTOSTAPHYLOS UVA-URSI LEAF\URTICA DIOICA
  2. AMARYL [Concomitant]
     Active Substance: GLIMEPIRIDE
  3. METFORMIN [Concomitant]
     Active Substance: METFORMIN HYDROCHLORIDE
  4. FORXIGA [Suspect]
     Active Substance: DAPAGLIFLOZIN
     Indication: TYPE 2 DIABETES MELLITUS
     Dosage: 10.0MG UNKNOWN
     Route: 048
     Dates: start: 20161012, end: 20161212
  5. LYXUMIA [Concomitant]
     Active Substance: LIXISENATIDE

REACTIONS (3)
  - Muscular weakness [Unknown]
  - Fatigue [Unknown]
  - Polyuria [Unknown]

NARRATIVE: CASE EVENT DATE: 201612
